FAERS Safety Report 9926114 (Version 1)
Quarter: 2014Q1

REPORT INFORMATION
  Report Type: Spontaneous
  Country: BR (occurrence: BR)
  Receive Date: 20140226
  Receipt Date: 20140226
  Transmission Date: 20141002
  Serious: Yes (Other)
  Sender: FDA-Public Use
  Company Number: BR-ASTRAZENECA-2014SE11921

PATIENT
  Age: 70 Year
  Sex: Female
  Weight: 76 kg

DRUGS (5)
  1. CRESTOR [Suspect]
     Indication: BLOOD CHOLESTEROL INCREASED
     Route: 048
     Dates: end: 2013
  2. ATENOLOL [Suspect]
     Indication: CORONARY ARTERY OCCLUSION
     Route: 048
     Dates: start: 2012
  3. CLORANA [Suspect]
     Indication: CORONARY ARTERY OCCLUSION
     Dosage: DAILY
     Route: 048
     Dates: start: 2012
  4. CONDROFLEX [Concomitant]
     Indication: SPINAL DISORDER
     Route: 048
  5. MOTORE [Concomitant]
     Indication: SPINAL DISORDER
     Route: 048

REACTIONS (3)
  - Coronary artery occlusion [Recovered/Resolved]
  - Blood cholesterol increased [Unknown]
  - Therapy cessation [Unknown]
